FAERS Safety Report 15616980 (Version 6)
Quarter: 2018Q4

REPORT INFORMATION
  Report Type: Spontaneous
  Country: CN (occurrence: CN)
  Receive Date: 20181114
  Receipt Date: 20181217
  Transmission Date: 20190205
  Serious: Yes (Life-Threatening, Other)
  Sender: FDA-Public Use
  Company Number: CN-PFIZER INC-2018466890

PATIENT
  Age: 34 Year
  Sex: Male
  Weight: 95 kg

DRUGS (8)
  1. CEFOPERAZONE SODIUM AND SULBACTAM [Concomitant]
     Indication: LUNG INFECTION
     Dosage: 3 G, 4X/DAY
     Route: 041
  2. AZITHROMYCIN ANHYDROUS. [Suspect]
     Active Substance: AZITHROMYCIN ANHYDROUS
     Indication: ANTI-INFECTIVE THERAPY
     Dosage: 0.5 G, 1X/DAY
     Route: 041
  3. TIGECYCLINE. [Concomitant]
     Active Substance: TIGECYCLINE
     Indication: ANTI-INFECTIVE THERAPY
     Dosage: 100 MG, UNK (INITIAL DOSE)
     Route: 041
  4. TIGECYCLINE. [Concomitant]
     Active Substance: TIGECYCLINE
     Indication: LUNG INFECTION
     Dosage: 50 MG, 2X/DAY (IVGTT, INITIAL DOSE OF 100MG)
     Route: 041
  5. FLUCONAZOLE. [Suspect]
     Active Substance: FLUCONAZOLE
     Indication: ANTI-INFECTIVE THERAPY
     Dosage: 800 MG, UNK (INITIAL DOSE)
     Route: 041
  6. FLUCONAZOLE. [Suspect]
     Active Substance: FLUCONAZOLE
     Indication: LUNG INFECTION
     Dosage: 400 MG, 1X/DAY
     Route: 041
  7. CEFOPERAZONE SODIUM AND SULBACTAM [Concomitant]
     Indication: ANTI-INFECTIVE THERAPY
     Dosage: 1.5 G, 2X/DAY (IVGTT)
     Route: 041
  8. AZITHROMYCIN ANHYDROUS. [Suspect]
     Active Substance: AZITHROMYCIN ANHYDROUS
     Indication: LUNG INFECTION

REACTIONS (1)
  - Arrhythmia [Recovered/Resolved]
